FAERS Safety Report 6848046-8 (Version None)
Quarter: 2010Q3

REPORT INFORMATION
  Report Type: 
  Country: None (occurrence: None)
  Receive Date: 20100716
  Receipt Date: 20100708
  Transmission Date: 20110219
  Serious: Yes (Hospitalization, Other)
  Sender: FDA-Public Use
  Company Number: US-ABBOTT-10P-163-0656548-00

PATIENT
  Sex: Female
  Weight: 83.99 kg

DRUGS (10)
  1. NIASPAN [Suspect]
     Indication: BLOOD CHOLESTEROL INCREASED
     Dosage: AT BEDTIME
     Route: 048
     Dates: start: 20000101
  2. COUMADIN [Suspect]
     Indication: CORONARY ARTERIAL STENT INSERTION
     Dates: start: 20030601, end: 20030601
  3. COUMADIN [Suspect]
     Dates: start: 20100101, end: 20100101
  4. ZOCOR [Concomitant]
     Indication: BLOOD CHOLESTEROL INCREASED
  5. LANTUS [Concomitant]
     Indication: DIABETES MELLITUS
  6. METFORMIN HCL [Concomitant]
     Indication: DIABETES MELLITUS
  7. GLYBURIDE [Concomitant]
     Indication: DIABETES MELLITUS
  8. FUROSEMIDE [Concomitant]
     Indication: HYPERTENSION
  9. RAMIPRIL [Concomitant]
     Indication: HYPERTENSION
  10. PRILOSEC [Concomitant]
     Indication: GASTROOESOPHAGEAL REFLUX DISEASE

REACTIONS (9)
  - ARTHRALGIA [None]
  - BLOOD GLUCOSE INCREASED [None]
  - DEVICE OCCLUSION [None]
  - DYSPEPSIA [None]
  - HEART RATE INCREASED [None]
  - HOT FLUSH [None]
  - MYALGIA [None]
  - MYOCARDIAL INFARCTION [None]
  - OESOPHAGEAL HAEMORRHAGE [None]
